FAERS Safety Report 7882928-3 (Version None)
Quarter: 2011Q4

REPORT INFORMATION
  Report Type: 
  Country: None (occurrence: None)
  Receive Date: 20111101
  Receipt Date: 20110622
  Transmission Date: 20120403
  Serious: Yes (Other)
  Sender: FDA-Public Use
  Company Number: US-AMGEN-USASP2011030104

PATIENT
  Sex: Female

DRUGS (3)
  1. ENBREL [Suspect]
     Indication: PSORIATIC ARTHROPATHY
     Dosage: 50 MG, 2 TIMES/WK
     Dates: start: 20031003, end: 20101201
  2. ENBREL [Suspect]
     Indication: PUSTULAR PSORIASIS
     Dosage: 50 MG, 2 TIMES/WK
     Dates: start: 20110401
  3. ENBREL [Suspect]
     Dosage: 50 MG, 2 TIMES/WK
     Dates: start: 20110401

REACTIONS (4)
  - INJECTION SITE PAIN [None]
  - PUSTULAR PSORIASIS [None]
  - COLITIS ULCERATIVE [None]
  - PSORIATIC ARTHROPATHY [None]
